FAERS Safety Report 25992413 (Version 1)
Quarter: 2025Q4

REPORT INFORMATION
  Report Type: Spontaneous
  Country: US (occurrence: None)
  Receive Date: 20251103
  Receipt Date: 20251103
  Transmission Date: 20260117
  Serious: No
  Sender: FDA-CTU
  Company Number: None

PATIENT
  Age: 80 Year
  Sex: Male
  Weight: 112.5 kg

DRUGS (2)
  1. ILUMYA [Suspect]
     Active Substance: TILDRAKIZUMAB-ASMN
     Indication: Psoriasis
     Dosage: OTHER FREQUENCY : EVERY 12 WEEKS;?
     Route: 058
     Dates: start: 20240126
  2. ILUMYA [Concomitant]
     Active Substance: TILDRAKIZUMAB-ASMN
     Dates: start: 20240126

REACTIONS (1)
  - Wrong schedule [None]

NARRATIVE: CASE EVENT DATE: 20251103
